FAERS Safety Report 7582311-4 (Version None)
Quarter: 2011Q2

REPORT INFORMATION
  Report Type: 
  Country: None (occurrence: None)
  Receive Date: 20110527
  Receipt Date: 20110125
  Transmission Date: 20111010
  Serious: Yes (Other)
  Sender: FDA-Public Use
  Company Number: US201101006128

PATIENT
  Sex: Female
  Weight: 99.8 kg

DRUGS (2)
  1. BYETTA [Suspect]
     Indication: TYPE 2 DIABETES MELLITUS
  2. EXENATIDE PEN, DISPOSABLE DEVICE (EXENATIDE PEN, DISPOSABLE) [Concomitant]

REACTIONS (1)
  - ANAPHYLACTIC REACTION [None]
